FAERS Safety Report 25341891 (Version 1)
Quarter: 2025Q2

REPORT INFORMATION
  Report Type: Report from Study
  Country: CA (occurrence: CA)
  Receive Date: 20250521
  Receipt Date: 20250521
  Transmission Date: 20250716
  Serious: Yes (Death, Other)
  Sender: ABBVIE
  Company Number: CA-JNJFOC-20241169826

PATIENT
  Age: 39 Year
  Sex: Male

DRUGS (3)
  1. IMBRUVICA [Suspect]
     Active Substance: IBRUTINIB
     Indication: Lymphoma
     Dosage: 31-DEC-2024,STRENGTH: 70MG/ML
     Route: 048
     Dates: start: 20241031
  2. IMBRUVICA [Suspect]
     Active Substance: IBRUTINIB
     Indication: Lymphoma
     Route: 048
  3. IMBRUVICA [Suspect]
     Active Substance: IBRUTINIB
     Indication: Lymphoma
     Dosage: 10-DEC-2024
     Route: 048
     Dates: start: 20241210

REACTIONS (5)
  - Death [Fatal]
  - Off label use [Unknown]
  - Oropharyngeal pain [Unknown]
  - Odynophagia [Unknown]
  - Hypertransaminasaemia [Recovering/Resolving]
